FAERS Safety Report 7712431-2 (Version None)
Quarter: 2011Q3

REPORT INFORMATION
  Report Type: 
  Country: None (occurrence: None)
  Receive Date: 20110826
  Receipt Date: 20110822
  Transmission Date: 20111222
  Serious: Yes (Life-Threatening, Hospitalization)
  Sender: FDA-Public Use
  Company Number: BR-ROCHE-798881

PATIENT
  Sex: Female

DRUGS (3)
  1. NULOJIX [Suspect]
     Indication: RENAL TRANSPLANT
     Route: 042
     Dates: start: 20061221
  2. PREDNISONE [Suspect]
     Indication: RENAL TRANSPLANT
     Route: 065
     Dates: start: 20061222
  3. MYCOPHENOLATE MOFETIL [Suspect]
     Indication: RENAL TRANSPLANT
     Route: 065
     Dates: start: 20061220

REACTIONS (1)
  - BRAIN NEOPLASM [None]
